FAERS Safety Report 5366809-5 (Version None)
Quarter: 2007Q2

REPORT INFORMATION
  Report Type: 
  Country: None (occurrence: None)
  Receive Date: 20070622
  Receipt Date: 20061206
  Transmission Date: 20071010
  Serious: Yes (Other)
  Sender: FDA-Public Use
  Company Number: A0622302A

PATIENT
  Age: 22 Year
  Sex: Male

DRUGS (2)
  1. ZYBAN [Suspect]
     Dosage: 150MG TWICE PER DAY
     Route: 048
     Dates: start: 20060919
  2. ALCOHOL [Suspect]
     Route: 048

REACTIONS (2)
  - AGGRESSION [None]
  - IRRITABILITY [None]
